FAERS Safety Report 7268791-2 (Version None)
Quarter: 2011Q1

REPORT INFORMATION
  Report Type: 
  Country: None (occurrence: None)
  Receive Date: 20110201
  Receipt Date: 20110131
  Transmission Date: 20110831
  Serious: Yes (Death)
  Sender: FDA-Public Use
  Company Number: UA-TEVA-XM22-04-254332GER

PATIENT
  Sex: Male
  Weight: 80 kg

DRUGS (49)
  1. CISPLATIN [Suspect]
     Route: 041
     Dates: start: 20100818, end: 20100818
  2. DEXAMETHASONE [Concomitant]
     Route: 042
     Dates: start: 20101022, end: 20101023
  3. METAMIZOLE SODIUM [Concomitant]
     Route: 042
     Dates: start: 20101022, end: 20101022
  4. XM22 PEG-FILGRASTIM [Suspect]
     Dosage: BLINDED XM22 6 MG OR PLACEBO
     Route: 058
     Dates: start: 20101014, end: 20101014
  5. ASCORBIC ACID [Concomitant]
     Route: 042
     Dates: start: 20100813, end: 20100815
  6. METAMIZOLE SODIUM [Concomitant]
     Indication: PULMONARY OEDEMA
     Route: 030
     Dates: start: 20101021, end: 20101021
  7. DIPHENHYDRAMINE [Concomitant]
     Route: 030
     Dates: start: 20101021, end: 20101021
  8. XM22 PEG-FILGRASTIM [Suspect]
     Dosage: BLINDED XM22 6 MG OR PLACEBO
     Route: 058
     Dates: start: 20100821, end: 20100821
  9. ONDANSETRON [Concomitant]
     Route: 042
     Dates: start: 20100908, end: 20100911
  10. ONDANSETRON [Concomitant]
     Route: 042
     Dates: start: 20101021, end: 20101021
  11. DIPHENHYDRAMINE [Concomitant]
     Indication: PULMONARY OEDEMA
     Route: 042
     Dates: start: 20100818, end: 20100820
  12. DIPHENHYDRAMINE [Concomitant]
     Route: 042
     Dates: start: 20101022, end: 20101022
  13. PREDNISOLONE [Concomitant]
     Indication: PULMONARY OEDEMA
     Route: 030
     Dates: start: 20101022
  14. NIKETHAMIDE [Concomitant]
     Indication: PULMONARY OEDEMA
     Route: 030
     Dates: start: 20101022
  15. CISPLATIN [Suspect]
     Route: 041
     Dates: start: 20100908, end: 20100908
  16. ONDANSETRON [Concomitant]
     Route: 042
     Dates: start: 20101011, end: 20101013
  17. DEXAMETHASONE [Concomitant]
     Route: 042
     Dates: start: 20101011, end: 20101013
  18. TOT'HEMA [Concomitant]
     Indication: ANAEMIA
     Route: 048
     Dates: start: 20100828, end: 20101021
  19. ETAMSILATE [Concomitant]
     Indication: PULMONARY OEDEMA
     Dates: start: 20101021, end: 20101021
  20. CORGLYCON (CONVALLARIA MAJALIS EXTRACT) [Concomitant]
     Indication: PULMONARY OEDEMA
     Route: 042
     Dates: start: 20101022, end: 20101023
  21. DOPAMINE [Concomitant]
     Indication: PULMONARY OEDEMA
     Route: 042
     Dates: start: 20101022, end: 20101023
  22. CISPLATIN [Suspect]
     Indication: NON-SMALL CELL LUNG CANCER
     Route: 041
     Dates: start: 20100723, end: 20100723
  23. CISPLATIN [Suspect]
     Route: 041
     Dates: start: 20101011, end: 20101011
  24. ETOPOSIDE [Suspect]
     Indication: NON-SMALL CELL LUNG CANCER
     Route: 041
     Dates: start: 20100723, end: 20100725
  25. ETOPOSIDE [Suspect]
     Route: 041
     Dates: start: 20100908, end: 20100910
  26. RED BLOOD CELLS [Concomitant]
     Indication: ANAEMIA
     Route: 042
     Dates: start: 20101021, end: 20101021
  27. PRIMAXIN [Concomitant]
     Indication: FEBRILE NEUTROPENIA
     Route: 042
     Dates: start: 20101022, end: 20101023
  28. XM22 PEG-FILGRASTIM [Suspect]
     Dosage: BLINDED XM22 6 MG OR PLACEBO
     Route: 058
     Dates: start: 20100911, end: 20100911
  29. DIPHENHYDRAMINE [Concomitant]
     Route: 042
     Dates: start: 20100908, end: 20100910
  30. DEXAMETHASONE [Concomitant]
     Indication: PREMEDICATION
     Route: 042
     Dates: start: 20100723, end: 20100725
  31. PLASMA [Concomitant]
     Indication: ANAEMIA
     Route: 042
     Dates: start: 20101021, end: 20101021
  32. PLASMA [Concomitant]
     Route: 042
     Dates: start: 20101022, end: 20101022
  33. COCARBOXYLASE [Concomitant]
     Indication: PULMONARY OEDEMA
     Route: 030
     Dates: start: 20101022, end: 20101022
  34. ETOPOSIDE [Suspect]
     Route: 041
     Dates: start: 20101011, end: 20101013
  35. DEXAMETHASONE [Concomitant]
     Indication: PULMONARY OEDEMA
     Route: 042
     Dates: start: 20100813, end: 20100815
  36. DEXAMETHASONE [Concomitant]
     Route: 042
     Dates: start: 20100818, end: 20100820
  37. AMINOCAPROIC ACID [Concomitant]
     Indication: PULMONARY OEDEMA
     Route: 042
     Dates: start: 20101021, end: 20101021
  38. INOSINE [Concomitant]
     Indication: PULMONARY OEDEMA
     Route: 042
     Dates: start: 20101022, end: 20101022
  39. XM22 PEG-FILGRASTIM [Suspect]
     Indication: COLONY STIMULATING FACTOR PROPHYLAXIS
     Dosage: BLINDED XM22 6 MG OR PLACEBO
     Route: 058
     Dates: start: 20100726, end: 20100726
  40. ETOPOSIDE [Suspect]
     Route: 041
     Dates: start: 20100818, end: 20100820
  41. ONDANSETRON [Concomitant]
     Indication: PREMEDICATION
     Route: 042
     Dates: start: 20100723, end: 20100725
  42. ONDANSETRON [Concomitant]
     Indication: VOMITING
     Route: 042
     Dates: start: 20100818, end: 20100820
  43. DIPHENHYDRAMINE [Concomitant]
     Indication: PREMEDICATION
     Route: 042
     Dates: start: 20100723, end: 20100725
  44. DIPHENHYDRAMINE [Concomitant]
     Route: 042
     Dates: start: 20101011, end: 20101013
  45. DEXAMETHASONE [Concomitant]
     Route: 042
     Dates: start: 20100908, end: 20100910
  46. SODIUM CHLORIDE [Concomitant]
     Route: 042
     Dates: start: 20100813, end: 20100815
  47. AMINOPHYLLINE [Concomitant]
     Indication: PULMONARY OEDEMA
     Route: 042
     Dates: start: 20101022, end: 20101023
  48. L-LYSINE AESCINATE [Concomitant]
     Indication: PULMONARY OEDEMA
     Route: 042
     Dates: start: 20101022, end: 20101023
  49. FUROSEMIDE [Concomitant]
     Indication: PULMONARY OEDEMA
     Route: 042
     Dates: start: 20101022, end: 20101023

REACTIONS (1)
  - PULMONARY OEDEMA [None]
